FAERS Safety Report 11155236 (Version 2)
Quarter: 2015Q2

REPORT INFORMATION
  Report Type: Spontaneous
  Country: US (occurrence: US)
  Receive Date: 20150602
  Receipt Date: 20150608
  Transmission Date: 20150821
  Serious: No
  Sender: FDA-Public Use
  Company Number: US-PFIZER INC-2015181225

PATIENT
  Age: 58 Year
  Sex: Female

DRUGS (1)
  1. IBRANCE [Suspect]
     Active Substance: PALBOCICLIB
     Indication: BREAST CANCER
     Dosage: 125 MG, CYCLIC  (ON DAYS 1-21 EVERY 28 DAYS)
     Route: 048

REACTIONS (2)
  - Feeling abnormal [Unknown]
  - Fatigue [Unknown]
